FAERS Safety Report 11131221 (Version 1)
Quarter: 2015Q2

REPORT INFORMATION
  Report Type: Report from Study
  Country: IT (occurrence: IT)
  Receive Date: 20150522
  Receipt Date: 20150522
  Transmission Date: 20150821
  Serious: Yes (Other)
  Sender: FDA-Public Use
  Company Number: IT-CELGENE-ITA-2015054231

PATIENT
  Age: 55 Year
  Sex: Male
  Weight: 68 kg

DRUGS (11)
  1. MELPHALAN [Suspect]
     Active Substance: MELPHALAN
     Indication: PLASMA CELL MYELOMA
     Route: 041
     Dates: start: 20120518, end: 20120519
  2. REVLIMID [Suspect]
     Active Substance: LENALIDOMIDE
     Indication: PLASMA CELL MYELOMA
     Route: 048
     Dates: start: 20120814, end: 20121008
  3. VELCADE [Suspect]
     Active Substance: BORTEZOMIB
     Route: 041
     Dates: start: 20120814, end: 20121008
  4. DEXAMETHASONE. [Suspect]
     Active Substance: DEXAMETHASONE
     Indication: PLASMA CELL MYELOMA
     Dosage: 100 MICROGRAM/SQ. METER
     Route: 048
     Dates: start: 20120124, end: 20120326
  5. DEXAMETHASONE. [Suspect]
     Active Substance: DEXAMETHASONE
     Route: 048
     Dates: start: 20120814, end: 20121008
  6. VELCADE [Suspect]
     Active Substance: BORTEZOMIB
     Indication: PLASMA CELL MYELOMA
     Route: 041
     Dates: start: 20120124, end: 20120326
  7. CYCLOPHOSPHAMIDE. [Suspect]
     Active Substance: CYCLOPHOSPHAMIDE
     Dosage: 10 MICROGRAM/KILOGRAM
     Route: 041
     Dates: start: 20120331, end: 20120401
  8. REVLIMID [Suspect]
     Active Substance: LENALIDOMIDE
     Route: 048
     Dates: start: 20121009, end: 20131127
  9. REVLIMID [Suspect]
     Active Substance: LENALIDOMIDE
     Route: 048
     Dates: start: 20150212
  10. CYCLOPHOSPHAMIDE. [Suspect]
     Active Substance: CYCLOPHOSPHAMIDE
     Indication: PLASMA CELL MYELOMA
     Route: 048
     Dates: start: 20120124, end: 20120326
  11. G-CSF [Concomitant]
     Active Substance: GRANULOCYTE COLONY-STIMULATING FACTOR NOS
     Indication: PLASMA CELL MYELOMA
     Route: 058
     Dates: start: 20120407, end: 20120414

REACTIONS (1)
  - Refractory anaemia with an excess of blasts [Unknown]

NARRATIVE: CASE EVENT DATE: 20141229
